FAERS Safety Report 5600513-0 (Version None)
Quarter: 2008Q1

REPORT INFORMATION
  Report Type: 
  Country: None (occurrence: None)
  Receive Date: 20080118
  Receipt Date: 20080114
  Transmission Date: 20080703
  Serious: Yes (Hospitalization)
  Sender: FDA-Public Use
  Company Number: 2007SP022196

PATIENT
  Age: 51 Year
  Sex: Male
  Weight: 88.905 kg

DRUGS (2)
  1. PEG-INTRON [Suspect]
     Indication: HEPATITIS C
     Dosage: 150 MCG;QW;SC
     Route: 058
     Dates: start: 20071005, end: 20071019
  2. RIBAVIRIN [Suspect]
     Indication: HEPATITIS C
     Dosage: 600 MG; BID; PO
     Route: 048
     Dates: start: 20071005, end: 20071025

REACTIONS (6)
  - BLOOD CALCIUM DECREASED [None]
  - CREATINE URINE DECREASED [None]
  - HAEMATOCRIT DECREASED [None]
  - HAEMOGLOBIN DECREASED [None]
  - HYPONATRAEMIA [None]
  - WHITE BLOOD CELL COUNT DECREASED [None]
